FAERS Safety Report 13752286 (Version 1)
Quarter: 2017Q3

REPORT INFORMATION
  Report Type: Spontaneous
  Country: US (occurrence: US)
  Receive Date: 20170713
  Receipt Date: 20170713
  Transmission Date: 20171127
  Serious: No
  Sender: FDA-Public Use
  Company Number: US-JAZZ-2017-US-006166

PATIENT
  Age: 47 Year
  Sex: Female

DRUGS (5)
  1. XYREM [Suspect]
     Active Substance: SODIUM OXYBATE
     Indication: NARCOLEPSY
     Dosage: 2.25G, BID
     Route: 048
     Dates: start: 201611, end: 201612
  2. NUVIGIL [Concomitant]
     Active Substance: ARMODAFINIL
  3. XYREM [Suspect]
     Active Substance: SODIUM OXYBATE
     Dosage: 3G, BID
     Route: 048
     Dates: start: 201612
  4. TOPAMAX [Concomitant]
     Active Substance: TOPIRAMATE
  5. CLARITIN-D NOS [Concomitant]
     Active Substance: LORATADINE\PSEUDOEPHEDRINE SULFATE

REACTIONS (1)
  - Somnambulism [Not Recovered/Not Resolved]

NARRATIVE: CASE EVENT DATE: 201611
